FAERS Safety Report 7643104-2 (Version None)
Quarter: 2011Q3

REPORT INFORMATION
  Report Type: 
  Country: None (occurrence: None)
  Receive Date: 20110728
  Receipt Date: 20110726
  Transmission Date: 20111222
  Serious: Yes (Hospitalization)
  Sender: FDA-Public Use
  Company Number: IT-BRISTOL-MYERS SQUIBB COMPANY-15927510

PATIENT
  Age: 56 Year
  Sex: Male

DRUGS (6)
  1. ABILIFY [Suspect]
     Indication: MANIA
     Dosage: 1DF=1 UNIT
     Route: 048
     Dates: start: 20110701, end: 20110704
  2. DELORAZEPAM [Concomitant]
     Route: 048
  3. LITHIUM CARBONATE [Concomitant]
     Dosage: 1DF= 3 UNITS CARBOLITHIUM 300MG CAPS
     Route: 048
  4. AKINETON [Concomitant]
     Dosage: 1DF=2 UNITS AKINETON 2MG TABS
     Route: 048
  5. NOZINAN [Concomitant]
     Dosage: 1DF=1 UNIT NOZINAN 25MG FILM COATED TABS
  6. ABILIFY [Suspect]
     Indication: BIPOLAR DISORDER
     Dosage: 1DF=1 UNIT
     Route: 048
     Dates: start: 20110701, end: 20110704

REACTIONS (8)
  - TACHYCARDIA [None]
  - TACHYPNOEA [None]
  - RALES [None]
  - CONFUSIONAL STATE [None]
  - DYSPNOEA [None]
  - PYREXIA [None]
  - SPEECH DISORDER [None]
  - DISORIENTATION [None]
